FAERS Safety Report 25644175 (Version 1)
Quarter: 2025Q3

REPORT INFORMATION
  Report Type: Spontaneous
  Country: GB (occurrence: GB)
  Receive Date: 20250805
  Receipt Date: 20250805
  Transmission Date: 20251021
  Serious: Yes (Other)
  Sender: CIPLA
  Company Number: GB-MHRA-EMIS-11913-f49a354b-c4a4-47ef-95a2-bf9315c711ff

PATIENT

DRUGS (6)
  1. RIVAROXABAN [Suspect]
     Active Substance: RIVAROXABAN
     Indication: Product used for unknown indication
     Dosage: 1 DOSAGE FORM, QD (ONE TO BE TAKEN EACH DAY)
     Route: 065
     Dates: start: 20150323
  2. SILDENAFIL [Concomitant]
     Active Substance: SILDENAFIL
     Indication: Product used for unknown indication
     Route: 065
     Dates: start: 20250508, end: 20250620
  3. SILDENAFIL [Concomitant]
     Active Substance: SILDENAFIL
     Route: 065
     Dates: start: 20250630
  4. ACETAMINOPHEN\CODEINE PHOSPHATE [Concomitant]
     Active Substance: ACETAMINOPHEN\CODEINE PHOSPHATE
     Indication: Product used for unknown indication
     Route: 065
     Dates: start: 20250520, end: 20250618
  5. COCODAMOL [Concomitant]
     Active Substance: ACETAMINOPHEN\CODEINE PHOSPHATE
     Indication: Product used for unknown indication
     Route: 065
     Dates: start: 20250715
  6. DICLOFENAC [Concomitant]
     Active Substance: DICLOFENAC
     Indication: Product used for unknown indication
     Dosage: 200 GRAM, TID
     Route: 065
     Dates: start: 20250715

REACTIONS (1)
  - Nasal abscess [Not Recovered/Not Resolved]

NARRATIVE: CASE EVENT DATE: 20250428
